FAERS Safety Report 8784590 (Version 1)
Quarter: 2012Q4

REPORT INFORMATION
  Report Type: Spontaneous
  Country: US (occurrence: None)
  Receive Date: 20120907
  Receipt Date: 20120907
  Transmission Date: 20130627
  Serious: Yes (Other)
  Sender: FDA-Public Use
  Company Number: None

PATIENT
  Age: 43 Year
  Sex: Male
  Weight: 72.58 kg

DRUGS (1)
  1. BACITRACIN ZINC AND POLYMYXIN B SULFATE [Suspect]
     Indication: CHEMICAL BURNS OF EYE
     Dates: start: 20120626

REACTIONS (6)
  - Blister [None]
  - Urticaria [None]
  - Rash [None]
  - Dysphagia [None]
  - Hypersensitivity [None]
  - Ocular hyperaemia [None]
